FAERS Safety Report 26066864 (Version 3)
Quarter: 2025Q4

REPORT INFORMATION
  Report Type: Spontaneous
  Country: US (occurrence: US)
  Receive Date: 20251119
  Receipt Date: 20251211
  Transmission Date: 20260117
  Serious: Yes (Hospitalization)
  Sender: TEVA
  Company Number: US-TEVA-VS-3392213

PATIENT
  Age: 14 Year
  Sex: Female

DRUGS (1)
  1. PHENTERMINE [Suspect]
     Active Substance: PHENTERMINE
     Indication: Intentional self-injury
     Dosage: TOTAL DOSE 1875MG; 34 MG/KG
     Route: 048

REACTIONS (7)
  - Toxicity to various agents [Recovering/Resolving]
  - Tachycardia [Recovering/Resolving]
  - Agitation [Recovered/Resolved]
  - Intentional overdose [Unknown]
  - Hypertension [Recovering/Resolving]
  - Vomiting [Recovering/Resolving]
  - Hallucination, visual [Recovering/Resolving]
